FAERS Safety Report 13990424 (Version 2)
Quarter: 2017Q4

REPORT INFORMATION
  Report Type: Report from Study
  Country: US (occurrence: US)
  Receive Date: 20170920
  Receipt Date: 20171031
  Transmission Date: 20180321
  Serious: Yes (Life-Threatening, Hospitalization, Other)
  Sender: FDA-Public Use
  Company Number: US-SHIRE-US201722538

PATIENT

DRUGS (28)
  1. MERCAPTOPURINE. [Suspect]
     Active Substance: MERCAPTOPURINE
     Dosage: UNK
     Route: 065
     Dates: start: 20170829
  2. METHOTREXATE. [Suspect]
     Active Substance: METHOTREXATE
     Indication: B-CELL TYPE ACUTE LEUKAEMIA
     Dosage: 15 MG, SINGLE
     Route: 037
     Dates: start: 20170711, end: 20170711
  3. METHOTREXATE. [Suspect]
     Active Substance: METHOTREXATE
     Dosage: 8150 MG,ONCE
     Route: 042
     Dates: start: 20170829
  4. MERCAPTOPURINE. [Suspect]
     Active Substance: MERCAPTOPURINE
     Dosage: 725 MG, 1X/WEEK
     Route: 048
     Dates: start: 20170619, end: 20170702
  5. CYTARABINE. [Suspect]
     Active Substance: CYTARABINE
     Dosage: 130 MG, 1X/DAY:QD
     Route: 058
     Dates: start: 20170626, end: 20170629
  6. CYTARABINE. [Suspect]
     Active Substance: CYTARABINE
     Dosage: 130 MG, 1X/DAY:QD
     Route: 058
     Dates: start: 20170724, end: 20170727
  7. VINCRISTINE [Suspect]
     Active Substance: VINCRISTINE
     Indication: B-CELL TYPE ACUTE LEUKAEMIA
     Dosage: UNK, SINGLE
     Route: 065
     Dates: start: 20170814, end: 20170814
  8. VINCRISTINE [Suspect]
     Active Substance: VINCRISTINE
     Dosage: UNK, SINGLE
     Route: 042
     Dates: start: 20170710, end: 20170710
  9. VINCRISTINE [Suspect]
     Active Substance: VINCRISTINE
     Dosage: 2 MG,ONCE
     Route: 042
     Dates: start: 20170829
  10. PEGASPARGASE [Suspect]
     Active Substance: PEGASPARGASE
     Dosage: 4350 IU, SINGLE
     Route: 042
     Dates: start: 20170703, end: 20170703
  11. RUXOLITINIB [Suspect]
     Active Substance: RUXOLITINIB
     Dosage: 85 MG, 1X/DAY:QD
     Route: 048
     Dates: start: 20170619, end: 20170704
  12. CYCLOPHOSPHAMIDE. [Suspect]
     Active Substance: CYCLOPHOSPHAMIDE
     Indication: B-CELL TYPE ACUTE LEUKAEMIA
     Dosage: 1700 MG, ONE DOSE
     Route: 042
     Dates: start: 20170624, end: 20170624
  13. CYTARABINE. [Suspect]
     Active Substance: CYTARABINE
     Dosage: 130 MG, 1X/DAY:QD
     Route: 058
     Dates: start: 20170619, end: 20170622
  14. MERCAPTOPURINE. [Suspect]
     Active Substance: MERCAPTOPURINE
     Indication: B-CELL TYPE ACUTE LEUKAEMIA
     Dosage: 700 MG, 1X/WEEK
     Route: 048
     Dates: start: 20170724, end: 20170806
  15. DAUNORUBICIN                       /00128202/ [Suspect]
     Active Substance: DAUNORUBICIN
     Indication: ACUTE LYMPHOCYTIC LEUKAEMIA
     Route: 065
  16. RUXOLITINIB [Suspect]
     Active Substance: RUXOLITINIB
     Indication: B-CELL TYPE ACUTE LEUKAEMIA
     Dosage: 80 MG, 2X/DAY:BID
     Route: 048
     Dates: start: 20170829
  17. VINCRISTINE [Suspect]
     Active Substance: VINCRISTINE
     Dosage: UNK, SINGLE
     Route: 042
     Dates: start: 20170703, end: 20170703
  18. METHOTREXATE. [Suspect]
     Active Substance: METHOTREXATE
     Dosage: 15 MG, SINGLE
     Route: 037
     Dates: start: 20170627, end: 20170627
  19. PEGASPARGASE [Suspect]
     Active Substance: PEGASPARGASE
     Indication: B PRECURSOR TYPE ACUTE LEUKAEMIA
     Dosage: 4200 IU, SINGLE
     Route: 042
     Dates: start: 20170814, end: 20170814
  20. CYCLOPHOSPHAMIDE. [Suspect]
     Active Substance: CYCLOPHOSPHAMIDE
     Dosage: 1740 MG, ONE DOSE
     Route: 042
     Dates: start: 20170619, end: 20170619
  21. VINCRISTINE [Suspect]
     Active Substance: VINCRISTINE
     Dosage: UNK, SINGLE
     Route: 042
     Dates: start: 20170807, end: 20170807
  22. RUXOLITINIB [Suspect]
     Active Substance: RUXOLITINIB
     Dosage: 85 MG, 2X/DAY:BID
     Route: 048
     Dates: start: 20170724, end: 20170806
  23. METHOTREXATE. [Suspect]
     Active Substance: METHOTREXATE
     Dosage: 15 MG, SINGLE
     Route: 037
     Dates: start: 20170620, end: 20170620
  24. METHOTREXATE. [Suspect]
     Active Substance: METHOTREXATE
     Dosage: 15 MG, SINGLE
     Route: 037
     Dates: start: 20170705, end: 20170705
  25. PREDNISONE. [Suspect]
     Active Substance: PREDNISONE
     Indication: B-CELL TYPE ACUTE LEUKAEMIA
     Dosage: UNK
     Route: 048
  26. CYTARABINE. [Suspect]
     Active Substance: CYTARABINE
     Indication: B-CELL TYPE ACUTE LEUKAEMIA
     Dosage: 130 MG, 1X/DAY:QD
     Route: 058
     Dates: start: 20170731, end: 20170803
  27. LEUCOVORIN                         /00566701/ [Suspect]
     Active Substance: LEUCOVORIN
     Indication: ACUTE LYMPHOCYTIC LEUKAEMIA
     Dosage: 24 MG, UNK
     Route: 042
     Dates: start: 20170831
  28. ENOXAPARIN [Concomitant]
     Active Substance: ENOXAPARIN
     Indication: ANTICOAGULANT THERAPY
     Dosage: 50 MG, 2X/DAY:BID
     Route: 058
     Dates: start: 20170829

REACTIONS (4)
  - Neutropenia [Recovered/Resolved]
  - Vascular access complication [Recovered/Resolved]
  - Pyrexia [Recovered/Resolved]
  - Decreased appetite [Recovered/Resolved]

NARRATIVE: CASE EVENT DATE: 20170823
